FAERS Safety Report 5594063-8 (Version None)
Quarter: 2008Q1

REPORT INFORMATION
  Report Type: 
  Country: None (occurrence: None)
  Receive Date: 20080116
  Receipt Date: 20080104
  Transmission Date: 20080703
  Serious: Yes (Other)
  Sender: FDA-Public Use
  Company Number: US-PFIZER INC-2006061613

PATIENT
  Sex: Female
  Weight: 70.3 kg

DRUGS (18)
  1. LYRICA [Suspect]
     Indication: PARAESTHESIA
     Route: 048
  2. LYRICA [Suspect]
     Indication: HYPOAESTHESIA
  3. NEURONTIN [Suspect]
     Indication: PARAESTHESIA
  4. ROXICODONE [Suspect]
  5. BENADRYL [Concomitant]
     Route: 065
  6. IBUPROFEN [Concomitant]
     Route: 065
  7. VICODIN [Concomitant]
     Route: 065
  8. ASPIRIN [Concomitant]
     Route: 065
  9. MIACALCIN [Concomitant]
     Route: 065
  10. ACTONEL [Concomitant]
     Route: 065
  11. ALPHAGAN [Concomitant]
     Route: 065
  12. ALPRAZOLAM [Concomitant]
     Route: 065
  13. ROGAINE [Concomitant]
     Route: 065
  14. VITAMINS [Concomitant]
     Route: 065
  15. GINKO BILOBA [Concomitant]
     Route: 065
  16. OMNICEF [Concomitant]
     Route: 065
  17. ACETAMINOPHEN [Concomitant]
     Route: 065
  18. ALL OTHER THERAPEUTIC PRODUCTS [Concomitant]
     Route: 065

REACTIONS (10)
  - ARTHRALGIA [None]
  - ARTHRITIS [None]
  - DISTURBANCE IN ATTENTION [None]
  - DIZZINESS [None]
  - DRUG INEFFECTIVE [None]
  - FATIGUE [None]
  - PAIN IN EXTREMITY [None]
  - SOMNOLENCE [None]
  - SWELLING FACE [None]
  - TENSION [None]
